FAERS Safety Report 7482459-9 (Version None)
Quarter: 2011Q2

REPORT INFORMATION
  Report Type: 
  Country: None (occurrence: None)
  Receive Date: 20110516
  Receipt Date: 20110503
  Transmission Date: 20111010
  Serious: Yes (Hospitalization)
  Sender: FDA-Public Use
  Company Number: FR-WATSON-2011-06316

PATIENT
  Age: 29 Year
  Sex: Female

DRUGS (1)
  1. LEVORA 0.15/30-21 [Suspect]
     Indication: ORAL CONTRACEPTION
     Dosage: UNK
     Dates: start: 20080701

REACTIONS (1)
  - CYTOLYTIC HEPATITIS [None]
